FAERS Safety Report 14154514 (Version 1)
Quarter: 2017Q4

REPORT INFORMATION
  Report Type: Spontaneous
  Country: US (occurrence: US)
  Receive Date: 20171102
  Receipt Date: 20171102
  Transmission Date: 20180321
  Serious: No
  Sender: FDA-Public Use
  Company Number: US-SHIRE-US201725667

PATIENT
  Sex: Female

DRUGS (1)
  1. XIIDRA [Suspect]
     Active Substance: LIFITEGRAST
     Indication: PRODUCT USED FOR UNKNOWN INDICATION
     Route: 047

REACTIONS (6)
  - Instillation site pain [Unknown]
  - Eye pain [Unknown]
  - Condition aggravated [Unknown]
  - Eye irritation [Unknown]
  - Instillation site reaction [Unknown]
  - Product taste abnormal [Unknown]
